FAERS Safety Report 7254147-5 (Version None)
Quarter: 2011Q1

REPORT INFORMATION
  Report Type: 
  Country: None (occurrence: None)
  Receive Date: 20110129
  Receipt Date: 20100210
  Transmission Date: 20110831
  Serious: No
  Sender: FDA-Public Use
  Company Number: US-ABBOTT-10P-163-0626207-00

PATIENT
  Sex: Female
  Weight: 47.216 kg

DRUGS (6)
  1. COLESTID [Concomitant]
     Indication: SHORT-BOWEL SYNDROME
  2. HUMIRA [Suspect]
     Indication: CROHN'S DISEASE
     Route: 058
     Dates: start: 20100120
  3. SYNTHROID [Concomitant]
     Indication: THYROID DISORDER
     Dates: start: 20000101
  4. OMEPRIZOLE [Concomitant]
     Indication: GASTROOESOPHAGEAL REFLUX DISEASE
  5. BACTRIM DS [Concomitant]
     Indication: PROPHYLAXIS
     Dosage: 800/160
  6. LEVAQUIN [Concomitant]
     Indication: PROPHYLAXIS

REACTIONS (1)
  - INJECTION SITE PAIN [None]
